FAERS Safety Report 14923891 (Version 1)
Quarter: 2018Q2

REPORT INFORMATION
  Report Type: Spontaneous
  Country: US (occurrence: US)
  Receive Date: 20180503
  Receipt Date: 20180503
  Transmission Date: 20180711
  Serious: Yes (Other)
  Sender: FDA-Public Use
  Company Number: None

PATIENT
  Age: 4 Year
  Sex: Male
  Weight: 18 kg

DRUGS (3)
  1. DYSPORT [Suspect]
     Active Substance: ABOBOTULINUMTOXINA
     Indication: MUSCLE SPASTICITY
     Route: 030
     Dates: start: 20180309, end: 20180309
  2. LACTULOSE. [Concomitant]
     Active Substance: LACTULOSE
     Dates: start: 20171116
  3. AMOXICILLIN. [Concomitant]
     Active Substance: AMOXICILLIN
     Dates: start: 20180325, end: 20180404

REACTIONS (5)
  - Peripheral coldness [None]
  - Skin discolouration [None]
  - Pallor [None]
  - Pain [None]
  - Pharyngitis streptococcal [None]

NARRATIVE: CASE EVENT DATE: 20180325
